FAERS Safety Report 8123195-5 (Version None)
Quarter: 2012Q1

REPORT INFORMATION
  Report Type: 
  Country: None (occurrence: None)
  Receive Date: 20120208
  Receipt Date: 20120201
  Transmission Date: 20120608
  Serious: Yes (Other)
  Sender: FDA-Public Use
  Company Number: PHHY2012CA008515

PATIENT
  Age: 7 Year
  Sex: Female

DRUGS (8)
  1. DEXAMETHASONE [Suspect]
     Route: 061
  2. METHOTREXATE [Suspect]
     Dosage: 15 MG/WEEK
     Route: 048
  3. GATIFLOXACIN [Concomitant]
     Dosage: 1 DF, QID
  4. PREDNISONE [Suspect]
     Dosage: 25 MG, UNK
     Route: 048
  5. ATROPINE [Concomitant]
     Dosage: 1 %, BID
  6. FOLIC ACID [Concomitant]
     Dosage: 1 MG, UNK
  7. METHOTREXATE [Suspect]
     Dosage: 10 MG/WEEK
     Route: 048
  8. PREDNISOLONE ACETATE [Suspect]
     Dosage: 1 %, Q2H
     Route: 061

REACTIONS (3)
  - MOUTH ULCERATION [None]
  - INTRAOCULAR PRESSURE INCREASED [None]
  - PNEUMONIA [None]
